FAERS Safety Report 18898550 (Version 2)
Quarter: 2021Q1

REPORT INFORMATION
  Report Type: Spontaneous
  Country: GB (occurrence: GB)
  Receive Date: 20210216
  Receipt Date: 20210305
  Transmission Date: 20210420
  Serious: Yes (Other)
  Sender: FDA-Public Use
  Company Number: GB-PFIZER INC-2021117074

PATIENT
  Age: 17 Year
  Sex: Male

DRUGS (4)
  1. DOXORUBICIN HCL [Suspect]
     Active Substance: DOXORUBICIN HYDROCHLORIDE
     Indication: EWING^S SARCOMA
     Dosage: UNK, CYCLIC (8 COURSES OF VIDE)
     Dates: start: 2014
  2. ETOPOSIDE. [Suspect]
     Active Substance: ETOPOSIDE
     Indication: EWING^S SARCOMA
     Dosage: UNK, CYCLIC (8 COURSES OF VIDE)
     Dates: start: 2014
  3. VINCRISTINE SULFATE. [Suspect]
     Active Substance: VINCRISTINE SULFATE
     Indication: EWING^S SARCOMA
     Dosage: UNK, CYCLIC (8 COURSES OF VIDE)
     Dates: start: 2014
  4. IFOSFAMIDE. [Suspect]
     Active Substance: IFOSFAMIDE
     Indication: EWING^S SARCOMA
     Dosage: UNK, CYCLIC (8 COURSES OF VIDE)
     Dates: start: 2014

REACTIONS (1)
  - Febrile neutropenia [Unknown]
